FAERS Safety Report 14670941 (Version 1)
Quarter: 2018Q1

REPORT INFORMATION
  Report Type: Spontaneous
  Country: GB (occurrence: GB)
  Receive Date: 20180322
  Receipt Date: 20180322
  Transmission Date: 20180509
  Serious: Yes (Other)
  Sender: FDA-Public Use
  Company Number: GB-ELI_LILLY_AND_COMPANY-GB201803006603

PATIENT
  Age: 54 Year
  Sex: Male
  Weight: 57 kg

DRUGS (2)
  1. FLUOXETINE HYDROCHLORIDE. [Suspect]
     Active Substance: FLUOXETINE HYDROCHLORIDE
     Indication: PRODUCT USED FOR UNKNOWN INDICATION
     Dosage: UNK UNK, UNKNOWN
     Route: 065
     Dates: start: 20180302
  2. NIFEDIPINE. [Concomitant]
     Active Substance: NIFEDIPINE
     Dosage: 1 DF, DAILY
     Route: 065
     Dates: start: 20161121, end: 20180302

REACTIONS (2)
  - Hyperhidrosis [Recovered/Resolved]
  - Sleep terror [Unknown]

NARRATIVE: CASE EVENT DATE: 20180302
